FAERS Safety Report 8175077-0 (Version None)
Quarter: 2012Q1

REPORT INFORMATION
  Report Type: 
  Country: None (occurrence: None)
  Receive Date: 20120229
  Receipt Date: 20120222
  Transmission Date: 20120608
  Serious: Yes (Other)
  Sender: FDA-Public Use
  Company Number: PHHY2011US65555

PATIENT
  Sex: Female

DRUGS (12)
  1. MULTI-VITAMINS [Concomitant]
     Dosage: 1 DF/DAILY
  2. BACLOFEN [Concomitant]
  3. GILENYA [Suspect]
     Indication: RELAPSING-REMITTING MULTIPLE SCLEROSIS
     Dosage: 0.5 MG/DAILY
     Route: 048
     Dates: start: 20110328, end: 20110518
  4. OXYBUTYNIN [Concomitant]
     Dosage: 10 MG, QD
  5. VITAMIN B-12 [Concomitant]
     Dosage: 1000 MG/DAILY
  6. 5- HTP [Concomitant]
     Dosage: 100 MG/DAILY
  7. CRANBERRY EXTRACT [Concomitant]
     Dosage: 500 MG/DAILY
     Route: 048
  8. VITAMIN D [Concomitant]
     Dosage: 1000 U/DAILY
  9. SUMATRIPTAN [Concomitant]
  10. CAMELLIA SINENSIS [Concomitant]
     Route: 048
  11. REBIF [Suspect]
     Dosage: 22 UG, UNK
  12. LEVONORGESTREL [Concomitant]
     Dosage: 0.01 MG/DAILY

REACTIONS (3)
  - MACULAR OEDEMA [None]
  - UVEITIS [None]
  - VITREOUS FLOATERS [None]
